FAERS Safety Report 15894899 (Version 1)
Quarter: 2019Q1

REPORT INFORMATION
  Report Type: Report from Study
  Country: IT (occurrence: IT)
  Receive Date: 20190131
  Receipt Date: 20190131
  Transmission Date: 20190417
  Serious: Yes (Other)
  Sender: FDA-Public Use
  Company Number: IT-ADIENNEP-2019AD000026

PATIENT
  Age: 15 Year
  Sex: Male

DRUGS (3)
  1. THIOTEPA. [Suspect]
     Active Substance: THIOTEPA
     Indication: STEM CELL TRANSPLANT
  2. SIROLIMUS. [Concomitant]
     Active Substance: SIROLIMUS
     Indication: IMMUNOSUPPRESSANT DRUG THERAPY
  3. MYCOPHENOLATE MOFETIL. [Concomitant]
     Active Substance: MYCOPHENOLATE MOFETIL
     Indication: IMMUNOSUPPRESSANT DRUG THERAPY

REACTIONS (6)
  - Gastritis viral [Recovered/Resolved with Sequelae]
  - Human herpesvirus 6 infection [Recovered/Resolved with Sequelae]
  - Encephalitis viral [Recovered/Resolved with Sequelae]
  - Acute graft versus host disease in liver [Unknown]
  - Pneumonia herpes viral [Recovered/Resolved with Sequelae]
  - Hepatitis C [Unknown]
